FAERS Safety Report 17112855 (Version 3)
Quarter: 2020Q1

REPORT INFORMATION
  Report Type: Spontaneous
  Country: DE (occurrence: DE)
  Receive Date: 20191204
  Receipt Date: 20200221
  Transmission Date: 20200409
  Serious: Yes (Hospitalization)
  Sender: FDA-Public Use
  Company Number: NVSC2019DE053908

PATIENT
  Sex: Male

DRUGS (7)
  1. ACETHYL CYSTEINE [Concomitant]
     Active Substance: ACETYLCYSTEINE
     Indication: PRODUCT USED FOR UNKNOWN INDICATION
     Dosage: 1 DF, QD (1X 600 MORNING)
     Route: 065
  2. CONCOR [Concomitant]
     Active Substance: BISOPROLOL FUMARATE
     Indication: PRODUCT USED FOR UNKNOWN INDICATION
     Dosage: 1 DF, QD (MORNING) (1X 5)
     Route: 065
  3. PANTOZOL [Concomitant]
     Active Substance: PANTOPRAZOLE SODIUM
     Indication: PRODUCT USED FOR UNKNOWN INDICATION
     Dosage: 1 DF, QD (1X 40 MORNING)
     Route: 065
  4. VALSARTAN - 1 A PHARMA 160 MG FILMTABLETTEN [Suspect]
     Active Substance: VALSARTAN
     Indication: HYPERTENSION
     Dosage: 160 MG, QD
     Route: 065
     Dates: start: 201511, end: 201810
  5. VALSACOR [Concomitant]
     Active Substance: VALSARTAN
     Indication: PRODUCT USED FOR UNKNOWN INDICATION
     Dosage: 1 DF, QD (1X 160 MORNING)
     Route: 065
  6. ACETYLSALICYLIC ACID [Concomitant]
     Active Substance: ASPIRIN
     Indication: ANTICOAGULANT THERAPY
     Dosage: 1 DF, QD (1X 100 NOON)
     Route: 065
  7. IBUPROFEN. [Concomitant]
     Active Substance: IBUPROFEN
     Indication: PRODUCT USED FOR UNKNOWN INDICATION
     Dosage: 1 DF, TID (1 X 600)
     Route: 065

REACTIONS (15)
  - Autonomic nervous system imbalance [Recovered/Resolved]
  - Benign prostatic hyperplasia [Unknown]
  - Emotional distress [Unknown]
  - Prostate cancer [Recovered/Resolved]
  - Prostate cancer [Recovered/Resolved]
  - Hypertonia [Unknown]
  - Lymphocele [Not Recovered/Not Resolved]
  - Blood uric acid increased [Unknown]
  - Disturbance in attention [Unknown]
  - Haemoglobin decreased [Unknown]
  - Fear of disease [Recovered/Resolved]
  - Erectile dysfunction [Recovered/Resolved]
  - Nocturia [Recovered/Resolved]
  - General physical health deterioration [Recovered/Resolved]
  - Urinary incontinence [Recovering/Resolving]

NARRATIVE: CASE EVENT DATE: 201901
